FAERS Safety Report 4686207-7 (Version None)
Quarter: 2005Q2

REPORT INFORMATION
  Report Type: 
  Country: None (occurrence: None)
  Receive Date: 20050607
  Receipt Date: 20050523
  Transmission Date: 20051028
  Serious: Yes (Hospitalization, Other)
  Sender: FDA-Public Use
  Company Number: 2005078497

PATIENT
  Sex: Female

DRUGS (11)
  1. CELEBREX [Suspect]
     Indication: NECK PAIN
     Dosage: (1 IN 1 D)
  2. PRAVACHOL [Concomitant]
  3. MULTIVITAMIN [Concomitant]
  4. CALTRATE (CALCIUM CAROBNATE) [Concomitant]
  5. ACTONEL [Concomitant]
  6. NASONEX [Concomitant]
  7. ALL OTHER THERAPEUTIC PRODUCTS (ALL OTHER THERAPEUTIC PRODUCTS) [Concomitant]
  8. MIRALAX [Concomitant]
  9. FISH (FHISH OIL) [Concomitant]
  10. LEVOTHYROXINE SODIUM [Concomitant]
  11. ACETYLSALICYLIC ACID SRT [Concomitant]

REACTIONS (19)
  - ARTERIAL DISORDER [None]
  - ATRIAL FIBRILLATION [None]
  - CARDIAC FAILURE CONGESTIVE [None]
  - DEPRESSION [None]
  - DIFFICULTY IN WALKING [None]
  - DYSPNOEA [None]
  - FALL [None]
  - FLUID RETENTION [None]
  - GASTRIC DISORDER [None]
  - HIP FRACTURE [None]
  - INSOMNIA [None]
  - MUSCULOSKELETAL DISORDER [None]
  - NECK PAIN [None]
  - NERVOUS SYSTEM DISORDER [None]
  - PERIPHERAL VASCULAR DISORDER [None]
  - SPINAL FRACTURE [None]
  - THERAPY NON-RESPONDER [None]
  - WEIGHT INCREASED [None]
  - WRIST FRACTURE [None]
